FAERS Safety Report 9225492 (Version 2)
Quarter: 2013Q2

REPORT INFORMATION
  Report Type: Report from Study
  Country: BE (occurrence: BE)
  Receive Date: 20130411
  Receipt Date: 20130502
  Transmission Date: 20140414
  Serious: Yes (Other)
  Sender: FDA-Public Use
  Company Number: BE-ROCHE-1209297

PATIENT
  Age: 71 Year
  Sex: 0

DRUGS (3)
  1. ALTEPLASE [Suspect]
     Indication: CARDIAC VALVE REPLACEMENT COMPLICATION
     Dosage: DOSE: 10 MG LOADING DOSE FOLLOWED BY 90 MG OVER 2 HOURS
     Route: 065
  2. HEPARIN [Suspect]
     Indication: CARDIAC VALVE REPLACEMENT COMPLICATION
     Route: 065
  3. ANTICOAGULANTS [Suspect]
     Indication: CARDIAC VALVE REPLACEMENT COMPLICATION
     Route: 048

REACTIONS (2)
  - Cerebrovascular accident [Recovered/Resolved]
  - Muscle haemorrhage [Unknown]
